FAERS Safety Report 15746767 (Version 2)
Quarter: 2019Q2

REPORT INFORMATION
  Report Type: Spontaneous
  Country: US (occurrence: US)
  Receive Date: 20181220
  Receipt Date: 20190527
  Transmission Date: 20190711
  Serious: Yes (Other)
  Sender: FDA-Public Use
  Company Number: US-SA-2018SA344528

PATIENT
  Age: 45 Year
  Sex: Female
  Weight: 86.17 kg

DRUGS (7)
  1. NEOSAR [Concomitant]
     Active Substance: CYCLOPHOSPHAMIDE
     Dosage: UNK UNK, UNK
  2. DOXIL [Concomitant]
     Active Substance: DOXORUBICIN HYDROCHLORIDE
     Dosage: UNK
  3. TAXOTERE [Suspect]
     Active Substance: DOCETAXEL
     Indication: BREAST CANCER FEMALE
     Dosage: 193 MG, Q3W
     Route: 042
     Dates: start: 200709, end: 200709
  4. TAXOTERE [Suspect]
     Active Substance: DOCETAXEL
     Dosage: 193 MG, Q3W
     Route: 042
     Dates: start: 20071101, end: 20071101
  5. TAXOTERE [Suspect]
     Active Substance: DOCETAXEL
     Dosage: 193 MG, Q3W
     Route: 042
     Dates: start: 20071011, end: 20071011
  6. TAXOTERE [Suspect]
     Active Substance: DOCETAXEL
     Dosage: 193 MG, Q3W
     Route: 042
     Dates: start: 200712, end: 200712
  7. ADRIAMYCIN [Concomitant]
     Active Substance: DOXORUBICIN HYDROCHLORIDE
     Dosage: UNK UNK, UNK

REACTIONS (6)
  - Pain [Unknown]
  - Alopecia [Not Recovered/Not Resolved]
  - Impaired quality of life [Unknown]
  - Psychological trauma [Unknown]
  - Anxiety [Unknown]
  - Emotional distress [Unknown]

NARRATIVE: CASE EVENT DATE: 200710
